FAERS Safety Report 7367156-2 (Version None)
Quarter: 2011Q1

REPORT INFORMATION
  Report Type: 
  Country: None (occurrence: None)
  Receive Date: 20110310
  Receipt Date: 20100628
  Transmission Date: 20110831
  Serious: Yes (Other)
  Sender: FDA-Public Use
  Company Number: 2010S1011765

PATIENT
  Age: 38 Year
  Sex: Female

DRUGS (5)
  1. EPIPEN [Suspect]
     Dosage: 0.3 MG;X1;SUBCUTANEOUS ; 0.3 MG;X2;SUBCUTANEOUS
     Route: 058
  2. METHYLPREDNISOLONE [Suspect]
     Indication: ASTHMA
     Dosage: INTRAVENOUS
     Route: 042
  3. FLUTICASONE PROPIONATE [Concomitant]
  4. IPRATROPIUM BROMIDE [Suspect]
  5. SALBUTAMOL SULFATE (SALBUTAMOL SULFATE) [Suspect]
     Indication: ASTHMA
     Dosage: INHALATION
     Route: 055

REACTIONS (8)
  - ASTHMA [None]
  - MYOCARDIAL INFARCTION [None]
  - CONDITION AGGRAVATED [None]
  - ELECTROCARDIOGRAM ABNORMAL [None]
  - DILATATION VENTRICULAR [None]
  - EJECTION FRACTION DECREASED [None]
  - TACHYPNOEA [None]
  - RESPIRATORY DISTRESS [None]
